FAERS Safety Report 14099215 (Version 1)
Quarter: 2017Q4

REPORT INFORMATION
  Report Type: Spontaneous
  Country: US (occurrence: US)
  Receive Date: 20171017
  Receipt Date: 20171017
  Transmission Date: 20180321
  Serious: Yes (Other)
  Sender: FDA-Public Use
  Company Number: US-EPIC PHARMA LLC-2017EPC01979

PATIENT
  Sex: Male
  Weight: 86.17 kg

DRUGS (7)
  1. SYNTHROID [Concomitant]
     Active Substance: LEVOTHYROXINE SODIUM
  2. BABY ASPIRIN [Concomitant]
     Active Substance: ASPIRIN
     Dosage: UNK MG, UNK
  3. UNSPECIFIED BETA-BLOCKER [Suspect]
     Active Substance: UNSPECIFIED INGREDIENT
  4. AMLODIPINE [Suspect]
     Active Substance: AMLODIPINE BESYLATE
     Indication: HYPERTENSION
     Dosage: 5 MG, INTERMITTENTLY
     Route: 048
     Dates: start: 2012
  5. PRAVASTATIN. [Concomitant]
     Active Substance: PRAVASTATIN
  6. UNSPECIFIED ANGIOTENSIN INHIBITOR [Suspect]
     Active Substance: UNSPECIFIED INGREDIENT
  7. AMLODIPINE [Suspect]
     Active Substance: AMLODIPINE BESYLATE
     Dosage: 5 MG, 1X/DAY
     Route: 048
     Dates: start: 201705

REACTIONS (1)
  - Sinus disorder [Recovering/Resolving]
